FAERS Safety Report 5949483-6 (Version None)
Quarter: 2008Q4

REPORT INFORMATION
  Report Type: 
  Country: None (occurrence: None)
  Receive Date: 20081112
  Receipt Date: 20081104
  Transmission Date: 20090506
  Serious: Yes (Other)
  Sender: FDA-Public Use
  Company Number: PHBS2008DE06213

PATIENT
  Age: 28 Year

DRUGS (4)
  1. CYCLOSPORINE [Suspect]
     Indication: BONE MARROW TRANSPLANT
  2. CYCLOSPORINE [Suspect]
     Indication: PROPHYLAXIS AGAINST GRAFT VERSUS HOST DISEASE
  3. PREDNISOLONE [Concomitant]
     Indication: CHRONIC GRAFT VERSUS HOST DISEASE
  4. BUDESONIDE [Concomitant]
     Indication: CHRONIC GRAFT VERSUS HOST DISEASE
     Dosage: 3 MG, TID
     Route: 048

REACTIONS (8)
  - ACUTE GRAFT VERSUS HOST DISEASE [None]
  - AUTOIMMUNE NEUTROPENIA [None]
  - CHRONIC GRAFT VERSUS HOST DISEASE [None]
  - DRY EYE [None]
  - EOSINOPHILIA [None]
  - IDIOPATHIC THROMBOCYTOPENIC PURPURA [None]
  - NAUSEA [None]
  - WEIGHT DECREASED [None]
